FAERS Safety Report 9253654 (Version 2)
Quarter: 2013Q4

REPORT INFORMATION
  Report Type: Spontaneous
  Country: US (occurrence: US)
  Receive Date: 20130425
  Receipt Date: 20131008
  Transmission Date: 20140711
  Serious: Yes (Hospitalization, Disabling, Other)
  Sender: FDA-Public Use
  Company Number: US-ASTRAZENECA-2013SE27564

PATIENT
  Age: 15851 Day
  Sex: Female
  Weight: 63.5 kg

DRUGS (32)
  1. NEXIUM [Suspect]
     Indication: DYSPEPSIA
     Route: 048
  2. NEXIUM [Suspect]
     Indication: GASTROOESOPHAGEAL REFLUX DISEASE
     Route: 048
  3. NEXIUM [Suspect]
     Indication: ULCER
     Route: 048
  4. NEXIUM [Suspect]
     Indication: GASTROOESOPHAGEAL REFLUX DISEASE
     Route: 048
  5. NEXIUM [Suspect]
     Indication: DYSPEPSIA
     Dosage: ONE OR TWO PER DAY
     Route: 048
     Dates: start: 20070611, end: 2012
  6. NEXIUM [Suspect]
     Indication: GASTROOESOPHAGEAL REFLUX DISEASE
     Dosage: ONE OR TWO PER DAY
     Route: 048
     Dates: start: 20070611, end: 2012
  7. NEXIUM [Suspect]
     Indication: ULCER
     Dosage: ONE OR TWO PER DAY
     Route: 048
     Dates: start: 20070611, end: 2012
  8. NEXIUM [Suspect]
     Indication: GASTROOESOPHAGEAL REFLUX DISEASE
     Dosage: ONE OR TWO PER DAY
     Route: 048
     Dates: start: 20070611, end: 2012
  9. NEXIUM [Suspect]
     Indication: DYSPEPSIA
     Route: 048
     Dates: start: 20070611
  10. NEXIUM [Suspect]
     Indication: GASTROOESOPHAGEAL REFLUX DISEASE
     Route: 048
     Dates: start: 20070611
  11. NEXIUM [Suspect]
     Indication: ULCER
     Route: 048
     Dates: start: 20070611
  12. NEXIUM [Suspect]
     Indication: GASTROOESOPHAGEAL REFLUX DISEASE
     Route: 048
     Dates: start: 20070611
  13. PRILOSEC [Suspect]
     Route: 048
  14. PRILOSEC [Suspect]
     Route: 048
     Dates: start: 20100306
  15. RANITIDINE [Concomitant]
     Dates: start: 2007
  16. PEPCID [Concomitant]
     Dates: start: 2008
  17. TUMS [Concomitant]
     Dosage: AS NEEDED
  18. PEPTO-BISMOL [Concomitant]
     Dosage: AS NEEDED
  19. MYLANTA [Concomitant]
     Dosage: AS NEEDED
  20. CYMBALTA [Concomitant]
  21. COMBIVENT [Concomitant]
  22. ADVAIR [Concomitant]
  23. PERCOSET [Concomitant]
  24. MIRTAZAPINE [Concomitant]
  25. METOCLOPRAMIDE [Concomitant]
  26. LYRICA [Concomitant]
  27. SKELXIN [Concomitant]
  28. CYANOCOBALAMIN [Concomitant]
  29. MULTIVITAMIN [Concomitant]
  30. FERROUS SULFATE [Concomitant]
  31. TRAMADOL [Concomitant]
     Dosage: EVERY DAY AS NEEDED
     Route: 048
  32. PREDNISONE [Concomitant]
     Route: 048
     Dates: start: 20060509

REACTIONS (16)
  - Convulsion [Unknown]
  - Arthritis [Unknown]
  - Chronic obstructive pulmonary disease [Unknown]
  - Fibromyalgia [Unknown]
  - Depression [Unknown]
  - Osteoporosis [Unknown]
  - Systemic lupus erythematosus [Unknown]
  - Bone disorder [Unknown]
  - Fractured coccyx [Unknown]
  - Osteoarthritis [Unknown]
  - Vitamin D deficiency [Unknown]
  - Spinal osteoarthritis [Unknown]
  - Intervertebral disc protrusion [Unknown]
  - Exostosis [Unknown]
  - Bone pain [Unknown]
  - Fall [Unknown]
